FAERS Safety Report 8010953-0 (Version None)
Quarter: 2011Q4

REPORT INFORMATION
  Report Type: 
  Country: None (occurrence: None)
  Receive Date: 20111222
  Receipt Date: 20111207
  Transmission Date: 20120403
  Serious: Yes (Hospitalization, Other)
  Sender: FDA-Public Use
  Company Number: 2011PL000212

PATIENT
  Age: 65 Year
  Sex: Male

DRUGS (2)
  1. ACETAMINOPHEN [Suspect]
     Indication: PRODUCT USED FOR UNKNOWN INDICATION
  2. PROLEUKIN [Suspect]
     Indication: MALIGNANT MELANOMA
     Dosage: IV
     Route: 042
     Dates: start: 20111121, end: 20111204

REACTIONS (1)
  - ANAL ABSCESS [None]
